FAERS Safety Report 6025857-2 (Version None)
Quarter: 2008Q4

REPORT INFORMATION
  Report Type: 
  Country: None (occurrence: None)
  Receive Date: 20081224
  Receipt Date: 20081210
  Transmission Date: 20090506
  Serious: Yes (Death)
  Sender: FDA-Public Use
  Company Number: 8040261

PATIENT
  Age: 82 Year
  Sex: Male
  Weight: 108.8 kg

DRUGS (6)
  1. KEPPRA [Suspect]
     Indication: CONVULSION
     Dosage: 2/D PO
     Route: 048
     Dates: start: 20080501, end: 20081015
  2. GLUCOPHAGE [Concomitant]
  3. GLUCOTROL [Concomitant]
  4. ZOLOFT [Concomitant]
  5. JANUVIA [Concomitant]
  6. NORVASC [Concomitant]

REACTIONS (5)
  - ASTHENIA [None]
  - BLOOD GLUCOSE INCREASED [None]
  - FATIGUE [None]
  - MYELODYSPLASTIC SYNDROME [None]
  - PNEUMONIA [None]
